FAERS Safety Report 17674796 (Version 1)
Quarter: 2020Q2

REPORT INFORMATION
  Report Type: Spontaneous
  Country: US (occurrence: US)
  Receive Date: 20200415
  Receipt Date: 20200415
  Transmission Date: 20200714
  Serious: No
  Sender: FDA-Public Use
  Company Number: None

PATIENT
  Age: 63 Year
  Sex: Male

DRUGS (1)
  1. ABALOPARATIDE (ABALOPARATIDE 80MCG/0.04ML INJ, PEN, 1.56ML) [Suspect]
     Active Substance: ABALOPARATIDE
     Indication: OSTEOPOROSIS
     Dosage: ?          OTHER STRENGTH:80/0.04 UG/ML;?
     Dates: start: 20190724, end: 20190925

REACTIONS (4)
  - Nausea [None]
  - Sedation [None]
  - Fatigue [None]
  - Vomiting [None]

NARRATIVE: CASE EVENT DATE: 20190925
